FAERS Safety Report 25102650 (Version 1)
Quarter: 2025Q1

REPORT INFORMATION
  Report Type: Spontaneous
  Country: US (occurrence: US)
  Receive Date: 20250321
  Receipt Date: 20250321
  Transmission Date: 20250408
  Serious: No
  Sender: RANBAXY
  Company Number: US-SUN PHARMACEUTICAL INDUSTRIES LTD-2024R1-483453

PATIENT
  Sex: Female

DRUGS (1)
  1. LISDEXAMFETAMINE [Suspect]
     Active Substance: LISDEXAMFETAMINE
     Indication: Product used for unknown indication
     Route: 065

REACTIONS (7)
  - Therapeutic product effect decreased [Unknown]
  - Therapeutic product effect delayed [Unknown]
  - Therapeutic response changed [Unknown]
  - Headache [Unknown]
  - Nausea [Unknown]
  - Product substitution issue [Unknown]
  - Visual impairment [Unknown]
